FAERS Safety Report 9105922 (Version 2)
Quarter: 2013Q1

REPORT INFORMATION
  Report Type: Spontaneous
  Country: JP (occurrence: JP)
  Receive Date: 20130207
  Receipt Date: 20130207
  Transmission Date: 20140127
  Serious: Yes (Death, Hospitalization)
  Sender: FDA-Public Use
  Company Number: JP-B.I. PHARMACEUTICALS,INC./RIDGEFIELD-2013-BI-02442NB

PATIENT
  Age: 88 Year
  Sex: Male

DRUGS (4)
  1. PRAZAXA [Suspect]
     Indication: ATRIAL FIBRILLATION
     Dosage: 220 MG
     Route: 048
  2. BUFFERIN [Suspect]
     Dosage: 81 MG
     Route: 048
  3. MEDICATION NOT FURTHER SPECIFIED [Concomitant]
     Indication: PARKINSON^S DISEASE
     Route: 048
  4. MEDICATION NOT FURTHER SPECIFIED [Concomitant]
     Indication: PROSTATE CANCER
     Route: 048

REACTIONS (1)
  - Gastrointestinal haemorrhage [Fatal]
